FAERS Safety Report 13710086 (Version 1)
Quarter: 2017Q3

REPORT INFORMATION
  Report Type: Spontaneous
  Country: US (occurrence: US)
  Receive Date: 20170703
  Receipt Date: 20170703
  Transmission Date: 20171127
  Serious: No
  Sender: FDA-Public Use
  Company Number: US-TEVA-733428ACC

PATIENT
  Age: 87 Year
  Sex: Female
  Weight: 62.65 kg

DRUGS (1)
  1. LIDOCAINE TOPICAL 5% PATCH [Suspect]
     Active Substance: LIDOCAINE
     Indication: SPONDYLITIS
     Route: 061
     Dates: start: 20161121, end: 20161122

REACTIONS (4)
  - Tenderness [Unknown]
  - Erythema [Unknown]
  - Blister [Unknown]
  - Pruritus [Unknown]

NARRATIVE: CASE EVENT DATE: 20161121
